FAERS Safety Report 12997429 (Version 3)
Quarter: 2016Q4

REPORT INFORMATION
  Report Type: Spontaneous
  Country: NL (occurrence: NL)
  Receive Date: 20161205
  Receipt Date: 20161214
  Transmission Date: 20170207
  Serious: Yes (Other)
  Sender: FDA-Public Use
  Company Number: NL-AUROBINDO-AUR-APL-2016-14816

PATIENT
  Age: 9 Year
  Sex: Male

DRUGS (1)
  1. PREDNISOLONE. [Suspect]
     Active Substance: PREDNISOLONE
     Indication: DUCHENNE MUSCULAR DYSTROPHY
     Dosage: 0.75 MG/KG, DAILY
     Route: 065

REACTIONS (2)
  - Autism spectrum disorder [Recovered/Resolved]
  - Obsessive-compulsive disorder [Recovered/Resolved]
